FAERS Safety Report 9496894 (Version 1)
Quarter: 2013Q3

REPORT INFORMATION
  Report Type: Spontaneous
  Country: US (occurrence: None)
  Receive Date: 20130903
  Receipt Date: 20130903
  Transmission Date: 20140515
  Serious: Yes (Life-Threatening, Other)
  Sender: FDA-Public Use
  Company Number: None

PATIENT
  Age: 50 Year
  Sex: Female
  Weight: 68.04 kg

DRUGS (1)
  1. CYMBALTA [Suspect]
     Indication: DEPRESSION
     Route: 048

REACTIONS (16)
  - Irritability [None]
  - Anger [None]
  - Arthralgia [None]
  - Lyme disease [None]
  - Headache [None]
  - Depression [None]
  - Crying [None]
  - Mood swings [None]
  - Feeling of despair [None]
  - Suicidal ideation [None]
  - Self-injurious ideation [None]
  - Insomnia [None]
  - Nightmare [None]
  - Decreased appetite [None]
  - Abnormal behaviour [None]
  - Treatment noncompliance [None]
